FAERS Safety Report 5563844-9 (Version None)
Quarter: 2007Q4

REPORT INFORMATION
  Report Type: 
  Country: None (occurrence: None)
  Receive Date: 20071217
  Receipt Date: 20070828
  Transmission Date: 20080405
  Serious: No
  Sender: FDA-Public Use
  Company Number: US-ASTRAZENECA-2007UW20557

PATIENT
  Age: 67 Year
  Weight: 68 kg

DRUGS (4)
  1. CRESTOR [Suspect]
     Dosage: 5MG X 5 DAYS
  2. EVISTA [Concomitant]
  3. MULTI-VITAMIN [Concomitant]
  4. CALCIUM [Concomitant]

REACTIONS (1)
  - SOMNOLENCE [None]
